FAERS Safety Report 8488566-6 (Version None)
Quarter: 2012Q3

REPORT INFORMATION
  Report Type: 
  Country: None (occurrence: None)
  Receive Date: 20120705
  Receipt Date: 20120626
  Transmission Date: 20120928
  Serious: Yes (Hospitalization)
  Sender: FDA-Public Use
  Company Number: US-GENZYME-THYM-1003297

PATIENT
  Sex: Female
  Weight: 57.15 kg

DRUGS (16)
  1. SUBLIMAZE PRESERVATIVE FREE [Concomitant]
     Indication: PAIN
     Dosage: 25-100MCG, INTRA-OP-MULTIPLE
     Route: 042
     Dates: start: 20110122, end: 20110122
  2. BACTROBAN [Concomitant]
     Indication: PRODUCT USED FOR UNKNOWN INDICATION
     Dosage: 1 G, BID
     Route: 065
     Dates: start: 20110122, end: 20110123
  3. ZOCOR [Concomitant]
     Indication: LIPIDS INCREASED
     Dosage: 20 MG, QD
     Route: 048
     Dates: start: 20110122, end: 20110123
  4. PERCOCET [Concomitant]
     Indication: PAIN
     Dosage: 7.5-325 MG, 2 TABLETS EVERY 4 HOURS, PRN
     Route: 048
     Dates: start: 20110117, end: 20110127
  5. VALCYTE [Concomitant]
     Indication: PRODUCT USED FOR UNKNOWN INDICATION
     Dosage: 225 MG, QD
     Route: 048
     Dates: start: 20110122, end: 20110123
  6. BENADRYL [Concomitant]
     Indication: PRODUCT USED FOR UNKNOWN INDICATION
     Dosage: 50 MG, ONCE
     Route: 042
     Dates: start: 20110122, end: 20110122
  7. NORCO [Concomitant]
     Indication: PRODUCT USED FOR UNKNOWN INDICATION
     Dosage: 5-325 MCG,1-2 TABLETS EVERY 4 HOURS PRN
     Route: 048
     Dates: start: 20110122, end: 20110123
  8. LIDOCAINE-SODIUM BICARBONATE [Concomitant]
     Indication: PRODUCT USED FOR UNKNOWN INDICATION
     Dosage: UNK
     Route: 065
     Dates: start: 20110122, end: 20110122
  9. NEXIUM [Concomitant]
     Indication: PRODUCT USED FOR UNKNOWN INDICATION
     Dosage: 20 MG, QD
     Route: 048
     Dates: start: 20110117, end: 20110716
  10. MYCOSTATIN [Concomitant]
     Indication: PRODUCT USED FOR UNKNOWN INDICATION
     Dosage: 5 ML, TID
     Route: 048
     Dates: start: 20110117, end: 20110127
  11. DELTASONE [Concomitant]
     Indication: PRODUCT USED FOR UNKNOWN INDICATION
     Dosage: 5 MG, QD
     Route: 048
     Dates: start: 20110122, end: 20110123
  12. THYMOGLOBULIN [Suspect]
     Indication: PROPHYLAXIS AGAINST TRANSPLANT REJECTION
     Dosage: UNK
     Route: 065
     Dates: start: 20110111, end: 20110119
  13. BENADRYL [Concomitant]
     Dosage: 25 MG, EVERY 6 HRS PRN
     Route: 048
     Dates: start: 20110122, end: 20110123
  14. BENADRYL [Concomitant]
     Indication: PRURITUS
  15. COREG [Concomitant]
     Indication: PRODUCT USED FOR UNKNOWN INDICATION
     Dosage: 12.5 MG, BID
     Route: 048
     Dates: start: 20110122, end: 20110123
  16. CELLCEPT [Concomitant]
     Indication: PROPHYLAXIS AGAINST GRAFT VERSUS HOST DISEASE
     Dosage: 1000 MG, BID
     Route: 048
     Dates: start: 20110122, end: 20110123

REACTIONS (2)
  - RENAL FAILURE ACUTE [None]
  - BLOOD CREATININE INCREASED [None]
